FAERS Safety Report 7584619-5 (Version None)
Quarter: 2011Q2

REPORT INFORMATION
  Report Type: 
  Country: None (occurrence: None)
  Receive Date: 20110630
  Receipt Date: 20110622
  Transmission Date: 20111010
  Serious: Yes (Other)
  Sender: FDA-Public Use
  Company Number: US-CEPHALON-2011002544

PATIENT
  Sex: Female

DRUGS (2)
  1. FENTORA [Suspect]
     Indication: FIBROMYALGIA
     Route: 002
     Dates: start: 20110512, end: 20110521
  2. DURAGESIC-100 [Concomitant]
     Route: 062

REACTIONS (9)
  - DYSPEPSIA [None]
  - FIBROMYALGIA [None]
  - ABDOMINAL PAIN UPPER [None]
  - NECK PAIN [None]
  - VOMITING [None]
  - BACK PAIN [None]
  - ABDOMINAL DISTENSION [None]
  - CHILLS [None]
  - DRUG INEFFECTIVE FOR UNAPPROVED INDICATION [None]
